FAERS Safety Report 26196792 (Version 1)
Quarter: 2025Q4

REPORT INFORMATION
  Report Type: Report from Study
  Country: IN (occurrence: IN)
  Receive Date: 20251224
  Receipt Date: 20251224
  Transmission Date: 20260118
  Serious: Yes (Other)
  Sender: ROCHE
  Company Number: IN-ROCHE-10000465764

PATIENT
  Age: 62 Year
  Sex: Female

DRUGS (1)
  1. RITUXIMAB [Suspect]
     Active Substance: RITUXIMAB
     Indication: Follicular lymphoma

REACTIONS (2)
  - Abdominal pain upper [Unknown]
  - Cholecystectomy [Unknown]

NARRATIVE: CASE EVENT DATE: 20251101
